FAERS Safety Report 9648376 (Version 1)
Quarter: 2013Q4

REPORT INFORMATION
  Report Type: Spontaneous
  Country: CA (occurrence: CA)
  Receive Date: 20131028
  Receipt Date: 20131028
  Transmission Date: 20140711
  Serious: Yes (Hospitalization, Other)
  Sender: FDA-Public Use
  Company Number: CA-NOVOPROD-390695

PATIENT
  Age: 42 Year
  Sex: Female
  Weight: 70.31 kg

DRUGS (7)
  1. VICTOZA [Suspect]
     Indication: PRODUCT USED FOR UNKNOWN INDICATION
     Dosage: 0.5 MG, QD
     Route: 065
  2. ADDERALL [Concomitant]
  3. ASPIRIN [Concomitant]
  4. COVERSYL                           /00790702/ [Concomitant]
  5. CRESTOR [Concomitant]
  6. GABAPENTIN [Concomitant]
  7. METFORMIN [Concomitant]

REACTIONS (6)
  - Musculoskeletal stiffness [Unknown]
  - Pain [Unknown]
  - Dizziness [Unknown]
  - Pancreatitis [Unknown]
  - Headache [Unknown]
  - Nausea [Unknown]
